FAERS Safety Report 18029152 (Version 1)
Quarter: 2020Q3

REPORT INFORMATION
  Report Type: Spontaneous
  Country: US (occurrence: US)
  Receive Date: 20200713
  Receipt Date: 20200713
  Transmission Date: 20201103
  Serious: Yes (Other)
  Sender: FDA-Public Use
  Company Number: None

PATIENT
  Age: 40 Year
  Sex: Female

DRUGS (3)
  1. BLOOD PRESSURE MEDICINE [Concomitant]
     Active Substance: UNSPECIFIED INGREDIENT
  2. DEGASA HAND SANITIZER LEMON LIME SCENT [Suspect]
     Active Substance: ALCOHOL
  3. ASSURED HAND SANITIZER 8OZ [Suspect]
     Active Substance: ALCOHOL

REACTIONS (3)
  - Vision blurred [None]
  - Headache [None]
  - Product odour abnormal [None]
